FAERS Safety Report 8245575-X (Version None)
Quarter: 2012Q1

REPORT INFORMATION
  Report Type: 
  Country: None (occurrence: None)
  Receive Date: 20120330
  Receipt Date: 20120326
  Transmission Date: 20120608
  Serious: Yes (Hospitalization)
  Sender: FDA-Public Use
  Company Number: DK-AMGEN-DNKSP2012019321

PATIENT
  Age: 69 Year
  Sex: Male

DRUGS (15)
  1. RITUXIMAB [Suspect]
     Dosage: 800 MG, UNK
     Route: 042
     Dates: start: 20110905
  2. NEUPOGEN [Suspect]
     Indication: MALIGNANT LYMPHOID NEOPLASM
     Dosage: 6 MG, UNK
     Route: 042
     Dates: start: 20110823
  3. PREDNISONE TAB [Suspect]
     Dosage: UNK
  4. DOXORUBICIN HCL [Suspect]
     Dosage: 100 MG, UNK
     Route: 042
     Dates: start: 20110905
  5. RITUXIMAB [Suspect]
     Indication: MALIGNANT LYMPHOID NEOPLASM
     Dosage: 500 MG, UNK
     Route: 042
     Dates: start: 20110822
  6. RITUXIMAB [Suspect]
     Dosage: 700 MG, UNK
     Route: 042
     Dates: start: 20120123
  7. VINCRISTINE [Suspect]
     Dosage: 2 MG, UNK
     Route: 042
     Dates: start: 20110905
  8. WARFARIN SODIUM [Suspect]
     Indication: DEEP VEIN THROMBOSIS
     Dosage: 5 MG, UNK
     Route: 048
     Dates: start: 20111205
  9. PREDNISONE TAB [Suspect]
     Dosage: 100 MG, UNK
     Route: 048
     Dates: start: 20110905
  10. CYCLOPHOSPHAMIDE [Suspect]
     Indication: MALIGNANT LYMPHOID NEOPLASM
     Dosage: 1500 MG, UNK
     Route: 042
     Dates: start: 20110822
  11. DOXORUBICIN HCL [Suspect]
     Indication: MALIGNANT LYMPHOID NEOPLASM
     Dosage: 100 MG, UNK
     Route: 042
     Dates: start: 20110822
  12. NEUPOGEN [Suspect]
     Dosage: 6 MG, UNK
     Route: 042
     Dates: start: 20110906
  13. PREDNISONE TAB [Suspect]
     Indication: MALIGNANT LYMPHOID NEOPLASM
     Dosage: 500 MG, UNK
     Route: 048
     Dates: start: 20110822
  14. CYCLOPHOSPHAMIDE [Suspect]
     Dosage: 1500 MG, UNK
     Route: 042
     Dates: start: 20110905
  15. VINCRISTINE [Suspect]
     Indication: MALIGNANT LYMPHOID NEOPLASM
     Dosage: 2 MG, UNK
     Route: 042
     Dates: start: 20110822

REACTIONS (1)
  - GASTRIC ULCER HAEMORRHAGE [None]
